FAERS Safety Report 5191116-3 (Version None)
Quarter: 2006Q4

REPORT INFORMATION
  Report Type: 
  Country: None (occurrence: None)
  Receive Date: 20061226
  Receipt Date: 20061211
  Transmission Date: 20070319
  Serious: Yes (Hospitalization)
  Sender: FDA-Public Use
  Company Number: PHRM2006FR03292

PATIENT
  Age: 80 Year
  Sex: Female

DRUGS (1)
  1. AREDIA [Suspect]
     Indication: MULTIPLE MYELOMA
     Dosage: 60 MG, QMO
     Route: 042
     Dates: start: 20010101

REACTIONS (4)
  - BLOOD CREATININE INCREASED [None]
  - LIPID PROTEINOSIS [None]
  - PROTEINURIA [None]
  - RENAL DISORDER [None]
